FAERS Safety Report 6087513-4 (Version None)
Quarter: 2009Q1

REPORT INFORMATION
  Report Type: 
  Country: None (occurrence: None)
  Receive Date: 20090219
  Receipt Date: 20090203
  Transmission Date: 20090719
  Serious: Yes (Other)
  Sender: FDA-Public Use
  Company Number: 8042877

PATIENT
  Age: 35 Year
  Sex: Female

DRUGS (3)
  1. KEPPRA [Suspect]
     Indication: EPILEPSY
     Dosage: 2 G 2/D
     Dates: start: 20080101
  2. TOPIRAMATE [Suspect]
     Indication: EPILEPSY
  3. CLONAZEPAM [Suspect]
     Indication: EPILEPSY

REACTIONS (4)
  - CONDITION AGGRAVATED [None]
  - CONVULSION [None]
  - HAEMOGLOBIN DECREASED [None]
  - THROMBOCYTOPENIA [None]
